FAERS Safety Report 7214206-X (Version None)
Quarter: 2010Q4

REPORT INFORMATION
  Report Type: 
  Country: None (occurrence: None)
  Receive Date: 20101126
  Receipt Date: 20091229
  Transmission Date: 20110411
  Serious: Yes (Other)
  Sender: FDA-Public Use
  Company Number: WAES 0812USA04682

PATIENT
  Age: 59 Year
  Sex: Female
  Weight: 95.2554 kg

DRUGS (4)
  1. FOSAMAX [Suspect]
     Indication: OSTEOPOROSIS
     Dosage: 5 MG/DAILY/PO
     Route: 048
     Dates: start: 19980930, end: 19981217
  2. FOSAMAX [Suspect]
     Indication: OSTEOPOROSIS
     Dosage: 10 MG/DAILY/PO
     Route: 048
     Dates: start: 19981217
  3. FOSAMAX [Suspect]
     Indication: OSTEOPOROSIS
     Dosage: 70 MG/WKY/PO
     Route: 048
     Dates: start: 20010426, end: 20050916
  4. COUMADIN [Concomitant]

REACTIONS (23)
  - ANTIPHOSPHOLIPID SYNDROME [None]
  - GASTROOESOPHAGEAL REFLUX DISEASE [None]
  - HERPES SIMPLEX [None]
  - IMPETIGO [None]
  - INCREASED TENDENCY TO BRUISE [None]
  - LYMPHADENOPATHY [None]
  - ORAL DISORDER [None]
  - ORAL PAIN [None]
  - ORAL TORUS [None]
  - OROPHARYNGEAL PAIN [None]
  - OSTEONECROSIS [None]
  - OTITIS MEDIA [None]
  - PAIN IN JAW [None]
  - PARANASAL SINUS HYPERSECRETION [None]
  - PERIODONTITIS [None]
  - RASH [None]
  - RESORPTION BONE INCREASED [None]
  - RHINITIS ALLERGIC [None]
  - TOOTH ABSCESS [None]
  - TOOTH DISORDER [None]
  - UPPER LIMB FRACTURE [None]
  - URTICARIA [None]
  - VIRAL INFECTION [None]
